FAERS Safety Report 23117225 (Version 4)
Quarter: 2024Q1

REPORT INFORMATION
  Report Type: Spontaneous
  Country: JP (occurrence: None)
  Receive Date: 20231027
  Receipt Date: 20240313
  Transmission Date: 20240410
  Serious: Yes (Hospitalization, Disabling)
  Sender: FDA-Public Use
  Company Number: 2023A243600

PATIENT
  Age: 86 Year
  Sex: Male
  Weight: 54 kg

DRUGS (13)
  1. ONDEXXYA [Suspect]
     Active Substance: ANDEXANET ALFA
     Indication: Subdural haematoma
     Route: 042
     Dates: start: 20230401, end: 20230401
  2. XARELTO [Suspect]
     Active Substance: RIVAROXABAN
     Indication: Atrial flutter
     Route: 048
     Dates: end: 20230331
  3. NEXIUM [Concomitant]
     Active Substance: ESOMEPRAZOLE MAGNESIUM
     Indication: Gastritis prophylaxis
     Route: 048
     Dates: start: 20171205, end: 20230331
  4. DAPAGLIFLOZIN [Concomitant]
     Active Substance: DAPAGLIFLOZIN
     Indication: Cardiac failure congestive
     Route: 048
     Dates: start: 20221006
  5. LASIX [Concomitant]
     Active Substance: FUROSEMIDE
     Indication: Cardiac failure congestive
     Route: 048
     Dates: start: 20180124
  6. SPIRONOLACTONE [Concomitant]
     Active Substance: SPIRONOLACTONE
     Indication: Cardiac failure congestive
     Route: 048
  7. ALENDRONATE [Concomitant]
     Active Substance: ALENDRONATE SODIUM
     Indication: Osteoporosis
     Route: 048
     Dates: end: 20230331
  8. BROTIZOLAM [Concomitant]
     Active Substance: BROTIZOLAM
     Indication: Insomnia
     Route: 048
     Dates: end: 20230331
  9. TAMSULOSIN HYDROCHLORIDE [Concomitant]
     Active Substance: TAMSULOSIN HYDROCHLORIDE
     Indication: Dysuria
     Route: 048
     Dates: end: 20230331
  10. LIPIDIL [Concomitant]
     Active Substance: FENOFIBRATE
     Indication: Dyslipidaemia
     Route: 048
     Dates: start: 20171207
  11. BISOPROLOL FUMARATE [Concomitant]
     Active Substance: BISOPROLOL FUMARATE
     Indication: Hypertension
     Route: 048
  12. LOXOPROFEN SODIUM [Concomitant]
     Active Substance: LOXOPROFEN SODIUM
     Indication: Sciatica
     Dosage: AS REQUIRED
     Route: 062
     Dates: start: 20191011, end: 20230331
  13. CALONAL [Concomitant]
     Active Substance: ACETAMINOPHEN
     Indication: Sciatica
     Route: 048
     Dates: start: 20191011, end: 20230331

REACTIONS (3)
  - Cerebral infarction [Recovered/Resolved with Sequelae]
  - Cholecystitis [Recovered/Resolved]
  - Haematoma [Recovering/Resolving]

NARRATIVE: CASE EVENT DATE: 20230402
